FAERS Safety Report 4581808-9 (Version None)
Quarter: 2005Q1

REPORT INFORMATION
  Report Type: 
  Country: None (occurrence: None)
  Receive Date: 20050214
  Receipt Date: 20040308
  Transmission Date: 20050727
  Serious: No
  Sender: FDA-Public Use
  Company Number: US-GLAXOSMITHKLINE-A0501619A

PATIENT
  Age: 12 Year
  Sex: Female

DRUGS (1)
  1. LAMICTAL [Suspect]
     Indication: PARTIAL SEIZURES
     Dosage: 125MG TWICE PER DAY
     Route: 048
     Dates: start: 20031222

REACTIONS (3)
  - ANOREXIA [None]
  - EYE SWELLING [None]
  - FATIGUE [None]
